FAERS Safety Report 5825429-6 (Version None)
Quarter: 2008Q3

REPORT INFORMATION
  Report Type: 
  Country: None (occurrence: None)
  Receive Date: 20080725
  Receipt Date: 20080725
  Transmission Date: 20090109
  Serious: Yes (Other)
  Sender: FDA-Public Use
  Company Number: None

PATIENT
  Age: 56 Year
  Sex: Female
  Weight: 65.318 kg

DRUGS (1)
  1. TRAMADOL HCL [Suspect]
     Indication: RESTLESS LEGS SYNDROME
     Dosage: 1 TABLET 4 TIMES A DAY PO
     Route: 048
     Dates: start: 20020701, end: 20080716

REACTIONS (11)
  - BLOOD PRESSURE INCREASED [None]
  - CHEST DISCOMFORT [None]
  - CHEST PAIN [None]
  - DRUG WITHDRAWAL SYNDROME [None]
  - DYSPNOEA [None]
  - HEADACHE [None]
  - HEART RATE INCREASED [None]
  - HYPERAESTHESIA [None]
  - INSOMNIA [None]
  - RESTLESSNESS [None]
  - STOMACH DISCOMFORT [None]
